FAERS Safety Report 9850078 (Version 1)
Quarter: 2013Q4

REPORT INFORMATION
  Report Type: Spontaneous
  Country: US (occurrence: None)
  Receive Date: 20131226
  Receipt Date: 20131226
  Transmission Date: 20140711
  Serious: Yes (Death, Hospitalization)
  Sender: FDA-Public Use
  Company Number: PHEH2012US015601

PATIENT
  Age: 76 Year
  Sex: Female
  Weight: 60 kg

DRUGS (3)
  1. AFINITOR (RAD) UNKNOWN [Suspect]
     Indication: NEUROENDOCRINE TUMOUR
     Route: 048
     Dates: start: 20120308
  2. ONDANSETRON (ONDANSETRON) [Concomitant]
  3. FENTANYL (FENTANYL) [Concomitant]

REACTIONS (3)
  - Neoplasm [None]
  - Asthenia [None]
  - Malignant neoplasm progression [None]
